FAERS Safety Report 7177804-8 (Version None)
Quarter: 2010Q4

REPORT INFORMATION
  Report Type: 
  Country: None (occurrence: None)
  Receive Date: 20101208
  Receipt Date: 20101122
  Transmission Date: 20110411
  Serious: Yes (Hospitalization, Other)
  Sender: FDA-Public Use
  Company Number: 2010P1002842

PATIENT
  Age: 52 Year
  Sex: Female

DRUGS (2)
  1. ENALAPRIL (NO PREF. NAME) [Suspect]
     Indication: HYPERTENSION
  2. TRIAMTERENE AND HYDROCHLOROTHIAZIDE [Concomitant]

REACTIONS (8)
  - ANGIOEDEMA [None]
  - BLOOD PRESSURE INCREASED [None]
  - DYSPHAGIA [None]
  - OESOPHAGEAL OEDEMA [None]
  - PALATAL OEDEMA [None]
  - PHARYNGEAL OEDEMA [None]
  - SENSATION OF FOREIGN BODY [None]
  - SPEECH DISORDER [None]
